FAERS Safety Report 7677024-4 (Version None)
Quarter: 2011Q3

REPORT INFORMATION
  Report Type: 
  Country: None (occurrence: None)
  Receive Date: 20110811
  Receipt Date: 20110803
  Transmission Date: 20111222
  Serious: Yes (Death, Other)
  Sender: FDA-Public Use
  Company Number: JP-ROCHE-782999

PATIENT
  Sex: Male
  Weight: 74 kg

DRUGS (7)
  1. CISPLATIN [Concomitant]
     Route: 041
     Dates: start: 20110519, end: 20110519
  2. CISPLATIN [Concomitant]
     Route: 041
     Dates: start: 20110609, end: 20110609
  3. XELODA [Suspect]
     Indication: GASTRIC CANCER
     Route: 048
     Dates: start: 20110428, end: 20110512
  4. XELODA [Suspect]
     Route: 048
     Dates: start: 20110519, end: 20110602
  5. EMEND [Concomitant]
     Route: 048
     Dates: start: 20110519, end: 20110519
  6. EMEND [Concomitant]
     Route: 048
     Dates: start: 20110609, end: 20110609
  7. EMEND [Concomitant]
     Route: 048
     Dates: start: 20110520, end: 20110521

REACTIONS (7)
  - BLOOD PRESSURE DECREASED [None]
  - ALTERED STATE OF CONSCIOUSNESS [None]
  - HAEMOPTYSIS [None]
  - MULTI-ORGAN FAILURE [None]
  - LUNG DISORDER [None]
  - CHILLS [None]
  - ANURIA [None]
